FAERS Safety Report 10137200 (Version 1)
Quarter: 2014Q2

REPORT INFORMATION
  Report Type: Spontaneous
  Country: US (occurrence: None)
  Receive Date: 20140428
  Receipt Date: 20140428
  Transmission Date: 20141212
  Serious: No
  Sender: FDA-Public Use
  Company Number: None

PATIENT
  Age: 25 Year
  Sex: Female
  Weight: 63.5 kg

DRUGS (3)
  1. GABAPENTIN [Suspect]
     Indication: DEPRESSION
     Dosage: HALF A  PILL TWICE DAILY TAKEN BY MOUTH
     Route: 048
  2. GABAPENTIN [Suspect]
     Indication: ANXIETY
     Dosage: HALF A  PILL TWICE DAILY TAKEN BY MOUTH
     Route: 048
  3. GABAPENTIN [Suspect]
     Indication: SCIATICA
     Dosage: HALF A  PILL TWICE DAILY TAKEN BY MOUTH
     Route: 048

REACTIONS (2)
  - Menstruation delayed [None]
  - Drug dose omission [None]
